FAERS Safety Report 23833367 (Version 2)
Quarter: 2024Q3

REPORT INFORMATION
  Report Type: Spontaneous
  Country: FR (occurrence: FR)
  Receive Date: 20240508
  Receipt Date: 20240827
  Transmission Date: 20241016
  Serious: Yes (Other)
  Sender: VERTEX
  Company Number: None

PATIENT
  Age: 5 Year
  Sex: Female
  Weight: 19 kg

DRUGS (10)
  1. ELEXACAFTOR\IVACAFTOR\TEZACAFTOR [Suspect]
     Active Substance: ELEXACAFTOR\IVACAFTOR\TEZACAFTOR
     Indication: Cystic fibrosis
     Dosage: (75 MG IVA/50 MG TEZA/100 MG ELEXA), 1 SACHET DAILY
     Route: 048
     Dates: start: 20231220
  2. ELEXACAFTOR\IVACAFTOR\TEZACAFTOR [Suspect]
     Active Substance: ELEXACAFTOR\IVACAFTOR\TEZACAFTOR
     Dosage: (75 MG IVA/50 MG TEZA/100 MG ELEXA), 1 SACHET EVERY OTHER DAY
     Route: 048
     Dates: start: 20240118
  3. ELEXACAFTOR\IVACAFTOR\TEZACAFTOR [Suspect]
     Active Substance: ELEXACAFTOR\IVACAFTOR\TEZACAFTOR
     Dosage: (60 MG IVA/40 MG TEZA/80 MG ELEXA), 1 SACHET DAILY
     Route: 048
     Dates: start: 20240213
  4. KALYDECO [Suspect]
     Active Substance: IVACAFTOR
     Indication: Cystic fibrosis
     Dosage: 1 SACHET DAILY
     Route: 048
     Dates: start: 20231220
  5. KALYDECO [Suspect]
     Active Substance: IVACAFTOR
     Dosage: 1 SACHET EVERY OTHER DAY
     Route: 048
     Dates: start: 20240118, end: 2024
  6. KALYDECO [Suspect]
     Active Substance: IVACAFTOR
     Dosage: 3 TIMES PER WEEK
     Route: 048
     Dates: start: 2024
  7. KALYDECO [Suspect]
     Active Substance: IVACAFTOR
     Dosage: SWITCHED TO (59.5 MG IVA) 1 SACHET DAILY
     Route: 048
     Dates: start: 20240213
  8. CREON [Concomitant]
     Active Substance: PANCRELIPASE AMYLASE\PANCRELIPASE LIPASE\PANCRELIPASE PROTEASE
     Dosage: 10,000, 4-4-4-5 CAPSULES PER DAY
  9. POLYETHYLENE GLYCOLS [Concomitant]
     Active Substance: POLYETHYLENE GLYCOLS
  10. MINERALS\VITAMINS [Concomitant]
     Active Substance: MINERALS\VITAMINS
     Dosage: 2 ML PER DAY

REACTIONS (3)
  - Agitation [Recovered/Resolved]
  - Disturbance in attention [Recovered/Resolved]
  - Initial insomnia [Recovering/Resolving]

NARRATIVE: CASE EVENT DATE: 20240101
